FAERS Safety Report 6051266-6 (Version None)
Quarter: 2009Q1

REPORT INFORMATION
  Report Type: 
  Country: None (occurrence: None)
  Receive Date: 20090126
  Receipt Date: 20090116
  Transmission Date: 20090719
  Serious: Yes (Hospitalization)
  Sender: FDA-Public Use
  Company Number: US-BIOGENIDEC-2009BI002065

PATIENT
  Age: 31 Year
  Sex: Female

DRUGS (1)
  1. AVONEX [Suspect]
     Indication: MULTIPLE SCLEROSIS
     Route: 030
     Dates: start: 20051022

REACTIONS (4)
  - AUTONOMIC NERVOUS SYSTEM IMBALANCE [None]
  - GASTROINTESTINAL HYPOMOTILITY [None]
  - MUSCLE SPASTICITY [None]
  - NEUROGENIC BLADDER [None]
